FAERS Safety Report 17353559 (Version 3)
Quarter: 2021Q2

REPORT INFORMATION
  Report Type: Spontaneous
  Country: JP (occurrence: JP)
  Receive Date: 20200131
  Receipt Date: 20210406
  Transmission Date: 20210716
  Serious: Yes (Life-Threatening, Other)
  Sender: FDA-Public Use
  Company Number: JP-ASTRAZENECA-2020SE14079

PATIENT
  Age: 66 Year
  Sex: Female
  Weight: 41 kg

DRUGS (20)
  1. ENALAPRIL [Suspect]
     Active Substance: ENALAPRIL
     Indication: ENDOCARDITIS
     Route: 048
     Dates: start: 20190110, end: 20190204
  2. VITADAN [Suspect]
     Active Substance: FURSULTIAMINE\HYDROXOCOBALAMIN ACETATE\PYRIDOXAL PHOSPHATE\RIBOFLAVIN
     Indication: STOMATITIS
     Route: 048
     Dates: start: 20190130, end: 20190204
  3. SENNOSIDE [Suspect]
     Active Substance: SENNOSIDES
     Dosage: DOSE UNKNOWN
     Route: 065
  4. SPIRONOLACTONE. [Concomitant]
     Active Substance: SPIRONOLACTONE
     Dosage: DOSE UNKNOWN
     Route: 048
  5. CEFTRIAXONE SODIUM HYDRATE [Suspect]
     Active Substance: CEFTRIAXONE SODIUM
     Dosage: DOSE UNKNOWN
     Route: 065
     Dates: start: 20181213
  6. LOXOPROFEN [Suspect]
     Active Substance: LOXOPROFEN
     Dosage: DOSE UNKNOWN
     Route: 065
  7. MEROPENEM. [Suspect]
     Active Substance: MEROPENEM
     Dosage: DOSE UNKNOWN
     Route: 065
  8. AMLODIPINE [Suspect]
     Active Substance: AMLODIPINE BESYLATE
     Indication: ENDOCARDITIS
     Route: 048
     Dates: start: 20190110, end: 20190204
  9. BROTIZOLAM OD [Suspect]
     Active Substance: BROTIZOLAM
     Indication: INSOMNIA
     Route: 048
     Dates: start: 20190120, end: 20190204
  10. DAIPHEN [Suspect]
     Active Substance: SULFAMETHOXAZOLE\TRIMETHOPRIM
     Indication: ENDOCARDITIS
     Route: 048
     Dates: start: 20190204, end: 20190204
  11. VANCOMYCIN [Suspect]
     Active Substance: VANCOMYCIN
     Dosage: DOSE UNKNOWN
     Route: 065
     Dates: start: 20181218
  12. FUROSEMIDE. [Concomitant]
     Active Substance: FUROSEMIDE
     Dosage: DOSE UNKNOWN
     Route: 048
  13. NEXIUM [Suspect]
     Active Substance: ESOMEPRAZOLE MAGNESIUM
     Indication: GASTRIC ULCER
     Route: 048
     Dates: start: 20190129, end: 20190204
  14. WARFARIN [Suspect]
     Active Substance: WARFARIN
     Indication: ENDOCARDITIS
     Dosage: 2 TO 3 MG EVERY DAY
     Route: 048
     Dates: start: 20190115, end: 20190205
  15. CEFALEXIN [Suspect]
     Active Substance: CEPHALEXIN
     Indication: ENDOCARDITIS
     Route: 048
     Dates: start: 20190201, end: 20190203
  16. NICORANDIL [Suspect]
     Active Substance: NICORANDIL
     Indication: ENDOCARDITIS
     Route: 048
     Dates: start: 20190110, end: 20190204
  17. COCARL [Suspect]
     Active Substance: ACETAMINOPHEN
     Dosage: DOSE UNKNOWN
     Route: 065
  18. FAMOTIDINE. [Suspect]
     Active Substance: FAMOTIDINE
     Dosage: DOSE UNKNOWN
     Route: 065
  19. TAKECAB [Suspect]
     Active Substance: VONOPRAZAN FUMARATE
     Dosage: DOSE UNKNOWN
     Route: 065
  20. DESPA [Concomitant]
     Indication: STOMATITIS
     Dosage: OPTIMAL DOSE
     Route: 049
     Dates: start: 20190129

REACTIONS (4)
  - Erythema multiforme [Recovered/Resolved]
  - Off label use [Unknown]
  - Blood pressure decreased [Unknown]
  - Toxic epidermal necrolysis [Unknown]

NARRATIVE: CASE EVENT DATE: 20190203
